FAERS Safety Report 13730267 (Version 3)
Quarter: 2021Q1

REPORT INFORMATION
  Report Type: Spontaneous
  Country: US (occurrence: US)
  Receive Date: 20170707
  Receipt Date: 20210118
  Transmission Date: 20210419
  Serious: Yes (Hospitalization)
  Sender: FDA-Public Use
  Company Number: US-JNJFOC-20170526235

PATIENT
  Age: 56 Year
  Sex: Female

DRUGS (2)
  1. XARELTO [Suspect]
     Active Substance: RIVAROXABAN
     Indication: THROMBOSIS PROPHYLAXIS
     Route: 048
     Dates: start: 20130509, end: 20130611
  2. XARELTO [Suspect]
     Active Substance: RIVAROXABAN
     Indication: HIP ARTHROPLASTY

REACTIONS (2)
  - Gastric ulcer [Unknown]
  - Chronic gastrointestinal bleeding [Unknown]

NARRATIVE: CASE EVENT DATE: 20130611
